FAERS Safety Report 9371856 (Version 1)
Quarter: 2013Q2

REPORT INFORMATION
  Report Type: Spontaneous
  Country: BR (occurrence: BR)
  Receive Date: 20130627
  Receipt Date: 20130627
  Transmission Date: 20140414
  Serious: Yes (Other)
  Sender: FDA-Public Use
  Company Number: BR-PFIZER INC-2013188761

PATIENT
  Age: 33 Year
  Sex: Female
  Weight: 73 kg

DRUGS (1)
  1. EVANOR [Suspect]
     Dosage: UNK
     Dates: start: 2013

REACTIONS (2)
  - Haemorrhage [Not Recovered/Not Resolved]
  - Headache [Unknown]
